FAERS Safety Report 8817413 (Version 1)
Quarter: 2012Q4

REPORT INFORMATION
  Report Type: 
  Country: HU (occurrence: HU)
  Receive Date: 20121004
  Receipt Date: 20121004
  Transmission Date: 20130627
  Serious: Yes (Other)
  Sender: FDA-Public Use
  Company Number: HU-PFIZER INC-2012242531

PATIENT
  Age: 78 Year
  Sex: Female
  Weight: 90 kg

DRUGS (8)
  1. XALATAN [Suspect]
     Indication: GLAUCOMA
     Dosage: 1 Gtt, 1x/day
     Dates: start: 201208
  2. ASTRIX [Concomitant]
     Dosage: UNK
  3. PANTOPRAZOL [Concomitant]
     Dosage: UNK
  4. VASILIP [Concomitant]
     Dosage: UNK
  5. COVEREX [Concomitant]
     Dosage: UNK
  6. MILURIT [Concomitant]
     Dosage: UNK
  7. NITROMINT [Concomitant]
     Dosage: UNK
  8. COVERCARD [Concomitant]
     Dosage: UNK

REACTIONS (5)
  - Visual impairment [Not Recovered/Not Resolved]
  - Eye pain [Not Recovered/Not Resolved]
  - Headache [Not Recovered/Not Resolved]
  - Eye irritation [Not Recovered/Not Resolved]
  - Drug ineffective [Not Recovered/Not Resolved]
